FAERS Safety Report 9542938 (Version 5)
Quarter: 2014Q1

REPORT INFORMATION
  Report Type: Report from Study
  Country: TR (occurrence: TR)
  Receive Date: 20130923
  Receipt Date: 20140123
  Transmission Date: 20141002
  Serious: Yes (Life-Threatening, Hospitalization)
  Sender: FDA-Public Use
  Company Number: TR-TEVA-433672USA

PATIENT
  Age: 69 Year
  Sex: Male
  Weight: 68.5 kg

DRUGS (18)
  1. BENDAMUSTINE [Suspect]
     Indication: CHRONIC LYMPHOCYTIC LEUKAEMIA
     Route: 042
     Dates: start: 20130905
  2. BENDAMUSTINE [Suspect]
     Indication: LYMPHOCYTIC LYMPHOMA
     Route: 042
     Dates: start: 20130906
  3. RITUXIMAB [Suspect]
     Indication: CHRONIC LYMPHOCYTIC LEUKAEMIA
     Route: 042
     Dates: start: 20130904
  4. RITUXIMAB [Suspect]
     Indication: LYMPHOCYTIC LYMPHOMA
  5. IBRUTINIB/PLACEBO [Suspect]
     Indication: CHRONIC LYMPHOCYTIC LEUKAEMIA
     Dosage: 420 MILLIGRAM DAILY;
     Route: 048
     Dates: start: 20130905
  6. IBRUTINIB/PLACEBO [Suspect]
     Indication: LYMPHOCYTIC LYMPHOMA
     Dosage: 420 MILLIGRAM DAILY;
     Route: 048
     Dates: start: 20130910
  7. ALYSE A [Concomitant]
     Indication: BURNING SENSATION
     Route: 048
  8. VASOSERC [Concomitant]
     Indication: VERTIGO
     Route: 048
  9. PREDNOL [Concomitant]
     Indication: HYPERSENSITIVITY
     Route: 042
     Dates: start: 20130904
  10. PAROL [Concomitant]
     Indication: HYPERSENSITIVITY
     Route: 048
     Dates: start: 20130904
  11. SYSTRAL [Concomitant]
     Indication: HYPERSENSITIVITY
     Route: 042
     Dates: start: 20130904
  12. SYSTRAL [Concomitant]
     Indication: PREMEDICATION
  13. DEKORT [Concomitant]
     Indication: PREMEDICATION
     Route: 042
     Dates: start: 20130904
  14. URIKOLIZ [Concomitant]
     Indication: PREMEDICATION
     Route: 048
     Dates: start: 20130904
  15. DIAZEM [Concomitant]
     Indication: PREMEDICATION
     Route: 048
     Dates: start: 20130904
  16. FAMOTIDINE [Concomitant]
     Indication: PREMEDICATION
     Route: 048
     Dates: start: 20130904
  17. GRANISETRON [Concomitant]
     Indication: PREMEDICATION
     Route: 042
     Dates: start: 20130905, end: 20130906
  18. PARACETAMOL [Concomitant]
     Indication: HYPERTENSION
     Dosage: 1000 MILLIGRAM DAILY;

REACTIONS (2)
  - Urate nephropathy [Recovered/Resolved]
  - Tumour lysis syndrome [Recovered/Resolved]
